FAERS Safety Report 7938694-6 (Version None)
Quarter: 2011Q4

REPORT INFORMATION
  Report Type: 
  Country: None (occurrence: None)
  Receive Date: 20111124
  Receipt Date: 20111119
  Transmission Date: 20120403
  Serious: Yes (Death, Hospitalization)
  Sender: FDA-Public Use
  Company Number: US-BRISTOL-MYERS SQUIBB COMPANY-15944200

PATIENT
  Age: 57 Year
  Sex: Male
  Weight: 88 kg

DRUGS (2)
  1. IPILIMUMAB [Suspect]
     Indication: MALIGNANT MELANOMA
     Dosage: LAST DOSE ON 14JUL11,CYCLE-2:21DAYS 10MG/KG OVER 90 MIN ON DAY 1 EVERY 12 WEEKS
     Route: 042
     Dates: start: 20110623, end: 20110714
  2. PROZAC [Concomitant]

REACTIONS (7)
  - ACUTE RESPIRATORY FAILURE [None]
  - PYELONEPHRITIS [None]
  - ENTEROCOLITIS INFECTIOUS [None]
  - BACK PAIN [None]
  - DELIRIUM [None]
  - URINARY TRACT INFECTION [None]
  - HYPOPHYSITIS [None]
